FAERS Safety Report 17605215 (Version 1)
Quarter: 2020Q1

REPORT INFORMATION
  Report Type: Spontaneous
  Country: JP (occurrence: JP)
  Receive Date: 20200331
  Receipt Date: 20200331
  Transmission Date: 20200409
  Serious: Yes (Death, Life-Threatening, Other)
  Sender: FDA-Public Use
  Company Number: JP-CHEPLA-C20201095

PATIENT
  Age: 46 Year
  Sex: Male

DRUGS (63)
  1. PREDNISOLONE. [Suspect]
     Active Substance: PREDNISOLONE
     Indication: ACUTE LYMPHOCYTIC LEUKAEMIA
     Dosage: 15 MILLIGRAM
     Route: 065
     Dates: start: 20171112, end: 20171114
  2. ICLUSIG [Suspect]
     Active Substance: PONATINIB
     Indication: ACUTE LYMPHOCYTIC LEUKAEMIA
     Dosage: 30 MILLIGRAM, QD
     Route: 048
     Dates: start: 20180310, end: 20180315
  3. TACROLIMUS MONOHYDRATE [Suspect]
     Active Substance: TACROLIMUS
     Indication: PROPHYLAXIS
     Route: 065
     Dates: start: 20180612, end: 20180712
  4. ACETYLSALICYLIC ACID [Suspect]
     Active Substance: ASPIRIN
     Indication: PROPHYLAXIS
     Dosage: 100 MILLIGRAM
     Route: 065
     Dates: start: 20180502, end: 20180524
  5. DALTEPARIN SODIUM [Suspect]
     Active Substance: DALTEPARIN SODIUM
     Indication: PROPHYLAXIS
     Route: 065
     Dates: start: 20180401, end: 20180501
  6. METHOTREXATE. [Suspect]
     Active Substance: METHOTREXATE
     Indication: ACUTE LYMPHOCYTIC LEUKAEMIA
     Dosage: 2000 MILLIGRAM
     Route: 065
     Dates: start: 20171207, end: 20171207
  7. METHOTREXATE. [Suspect]
     Active Substance: METHOTREXATE
     Indication: ACUTE LYMPHOCYTIC LEUKAEMIA
     Dosage: 17 MILLIGRAM
     Route: 065
     Dates: start: 20180616, end: 20180616
  8. CYTARABINE. [Suspect]
     Active Substance: CYTARABINE
     Indication: ACUTE LYMPHOCYTIC LEUKAEMIA
     Dosage: 100 MILLIGRAM, BID
     Route: 065
     Dates: start: 20180531, end: 20180603
  9. PREDNISOLONE. [Suspect]
     Active Substance: PREDNISOLONE
     Indication: ACUTE LYMPHOCYTIC LEUKAEMIA
     Dosage: 10 MILLIGRAM
     Route: 065
     Dates: start: 20180714, end: 20180820
  10. ICLUSIG [Suspect]
     Active Substance: PONATINIB
     Indication: ACUTE LYMPHOCYTIC LEUKAEMIA
     Dosage: 45 MILLIGRAM, QD
     Route: 048
     Dates: start: 20180316, end: 20180320
  11. DENOSINE [GANCICLOVIR] [Suspect]
     Active Substance: GANCICLOVIR
     Indication: C-REACTIVE PROTEIN INCREASED
     Route: 065
     Dates: start: 20180725, end: 20180821
  12. DAUNORUBICIN HYDROCHLORIDE. [Suspect]
     Active Substance: DAUNORUBICIN HYDROCHLORIDE
     Indication: ACUTE LYMPHOCYTIC LEUKAEMIA
     Dosage: 90 MILLIGRAM
     Route: 065
     Dates: start: 20171018, end: 20171020
  13. DAUNORUBICIN HYDROCHLORIDE. [Suspect]
     Active Substance: DAUNORUBICIN HYDROCHLORIDE
     Indication: ACUTE LYMPHOCYTIC LEUKAEMIA
     Dosage: 87 MILLIGRAM
     Route: 065
     Dates: start: 20180112, end: 20180112
  14. DALTEPARIN SODIUM [Suspect]
     Active Substance: DALTEPARIN SODIUM
     Indication: PROPHYLAXIS
     Route: 065
     Dates: start: 20180525, end: 20180821
  15. METHOTREXATE. [Suspect]
     Active Substance: METHOTREXATE
     Indication: ACUTE LYMPHOCYTIC LEUKAEMIA
     Dosage: 15 MILLIGRAM
     Route: 065
     Dates: start: 20171018, end: 20171018
  16. METHOTREXATE. [Suspect]
     Active Substance: METHOTREXATE
     Indication: ACUTE LYMPHOCYTIC LEUKAEMIA
     Dosage: 15 MILLIGRAM
     Route: 065
     Dates: start: 20171207, end: 20171207
  17. METHOTREXATE. [Suspect]
     Active Substance: METHOTREXATE
     Indication: ACUTE LYMPHOCYTIC LEUKAEMIA
     Dosage: 15 MILLIGRAM
     Route: 065
     Dates: start: 20180227, end: 20180227
  18. PREDNISOLONE. [Suspect]
     Active Substance: PREDNISOLONE
     Indication: ACUTE LYMPHOCYTIC LEUKAEMIA
     Dosage: 10 MILLIGRAM
     Route: 065
     Dates: start: 20170926, end: 20170928
  19. PREDNISOLONE. [Suspect]
     Active Substance: PREDNISOLONE
     Indication: ACUTE LYMPHOCYTIC LEUKAEMIA
     Dosage: 60 MILLIGRAM
     Route: 065
     Dates: start: 20171108, end: 20171109
  20. PREDNISOLONE. [Suspect]
     Active Substance: PREDNISOLONE
     Indication: ACUTE LYMPHOCYTIC LEUKAEMIA
     Dosage: 10 MILLIGRAM
     Route: 065
     Dates: start: 20180422, end: 20180424
  21. ICLUSIG [Suspect]
     Active Substance: PONATINIB
     Indication: ACUTE LYMPHOCYTIC LEUKAEMIA
     Dosage: 15 MILLIGRAM, QD
     Route: 048
     Dates: start: 20180302, end: 20180309
  22. ICLUSIG [Suspect]
     Active Substance: PONATINIB
     Indication: ACUTE LYMPHOCYTIC LEUKAEMIA
     Dosage: 45 MILLIGRAM, QD
     Route: 048
     Dates: start: 20180401, end: 20180408
  23. MEROPENEM. [Suspect]
     Active Substance: MEROPENEM
     Indication: C-REACTIVE PROTEIN INCREASED
     Route: 065
     Dates: start: 20180714, end: 20180821
  24. CYTARABINE. [Suspect]
     Active Substance: CYTARABINE
     Indication: ACUTE LYMPHOCYTIC LEUKAEMIA
     Dosage: 3900 MILLIGRAM, BID
     Route: 065
     Dates: start: 20180228, end: 20180301
  25. METHYLPREDNISOLONE. [Suspect]
     Active Substance: METHYLPREDNISOLONE
     Indication: ACUTE LYMPHOCYTIC LEUKAEMIA
     Dosage: 50 MILLIGRAM, BID
     Route: 065
     Dates: start: 20171207, end: 20171209
  26. VINCRISTINE SULFATE. [Suspect]
     Active Substance: VINCRISTINE SULFATE
     Indication: ACUTE LYMPHOCYTIC LEUKAEMIA
     Dosage: 2 MILLIGRAM
     Route: 065
     Dates: start: 20171025, end: 20171025
  27. PREDNISOLONE. [Suspect]
     Active Substance: PREDNISOLONE
     Indication: ACUTE LYMPHOCYTIC LEUKAEMIA
     Dosage: 60 MILLIGRAM
     Route: 065
     Dates: start: 20170901, end: 20170905
  28. PREDNISOLONE. [Suspect]
     Active Substance: PREDNISOLONE
     Indication: ACUTE LYMPHOCYTIC LEUKAEMIA
     Dosage: 30 MILLIGRAM
     Route: 065
     Dates: start: 20170924, end: 20170925
  29. PREDNISOLONE. [Suspect]
     Active Substance: PREDNISOLONE
     Indication: ACUTE LYMPHOCYTIC LEUKAEMIA
     Dosage: 120 MILLIGRAM
     Route: 065
     Dates: start: 20171018, end: 20171107
  30. ICLUSIG [Suspect]
     Active Substance: PONATINIB
     Indication: ACUTE LYMPHOCYTIC LEUKAEMIA
     Dosage: 15 MILLIGRAM, QD
     Route: 048
     Dates: start: 20180602
  31. ICLUSIG [Suspect]
     Active Substance: PONATINIB
     Indication: ACUTE LYMPHOCYTIC LEUKAEMIA
     Dosage: 15 MILLIGRAM, QD
     Route: 048
     Dates: start: 20180712, end: 20180712
  32. CYCLOPHOSPHAMIDE MONOHYDRATE [Suspect]
     Active Substance: CYCLOPHOSPHAMIDE
     Indication: ACUTE LYMPHOCYTIC LEUKAEMIA
     Dosage: 2300 MILLIGRAM
     Route: 065
     Dates: start: 20180112, end: 20180112
  33. CYCLOPHOSPHAMIDE MONOHYDRATE [Suspect]
     Active Substance: CYCLOPHOSPHAMIDE
     Indication: ACUTE LYMPHOCYTIC LEUKAEMIA
     Dosage: 2200 MILLIGRAM
     Route: 065
     Dates: start: 20180411, end: 20180411
  34. CYCLOPHOSPHAMIDE MONOHYDRATE [Suspect]
     Active Substance: CYCLOPHOSPHAMIDE
     Indication: ACUTE LYMPHOCYTIC LEUKAEMIA
     Dosage: 4000 MILLIGRAM
     Route: 065
     Dates: start: 20180610, end: 20180611
  35. DALTEPARIN SODIUM [Suspect]
     Active Substance: DALTEPARIN SODIUM
     Indication: PROPHYLAXIS
     Route: 065
     Dates: start: 20180302, end: 20180320
  36. AMIKACIN SULFATE. [Suspect]
     Active Substance: AMIKACIN SULFATE
     Indication: C-REACTIVE PROTEIN INCREASED
     Route: 065
     Dates: start: 20180717, end: 20180724
  37. METHOTREXATE. [Suspect]
     Active Substance: METHOTREXATE
     Indication: ACUTE LYMPHOCYTIC LEUKAEMIA
     Dosage: 1945 MILLIGRAM
     Route: 065
     Dates: start: 20180227, end: 20180227
  38. METHOTREXATE. [Suspect]
     Active Substance: METHOTREXATE
     Indication: ACUTE LYMPHOCYTIC LEUKAEMIA
     Dosage: 26 MILLIGRAM
     Route: 065
     Dates: start: 20180614, end: 20180614
  39. DEXAMETHASONE. [Suspect]
     Active Substance: DEXAMETHASONE
     Indication: ACUTE LYMPHOCYTIC LEUKAEMIA
     Dosage: 3.3 MILLIGRAM
     Route: 065
     Dates: start: 20171207, end: 20171207
  40. VINCRISTINE SULFATE. [Suspect]
     Active Substance: VINCRISTINE SULFATE
     Indication: ACUTE LYMPHOCYTIC LEUKAEMIA
     Dosage: 2 MILLIGRAM
     Route: 065
     Dates: start: 20171018, end: 20171018
  41. PREDNISOLONE. [Suspect]
     Active Substance: PREDNISOLONE
     Indication: ACUTE LYMPHOCYTIC LEUKAEMIA
     Dosage: 55 MILLIGRAM
     Route: 065
     Dates: start: 20180418, end: 20180419
  42. ICLUSIG [Suspect]
     Active Substance: PONATINIB
     Indication: ACUTE LYMPHOCYTIC LEUKAEMIA
     Dosage: 45 MILLIGRAM, QD
     Route: 048
     Dates: start: 20180412, end: 20180530
  43. ICLUSIG [Suspect]
     Active Substance: PONATINIB
     Indication: ACUTE LYMPHOCYTIC LEUKAEMIA
     Dosage: 45 MILLIGRAM, QD
     Route: 048
     Dates: start: 20180715, end: 20180820
  44. DENOSINE [GANCICLOVIR] [Suspect]
     Active Substance: GANCICLOVIR
     Indication: C-REACTIVE PROTEIN INCREASED
     Route: 065
     Dates: start: 20180724, end: 20180814
  45. DAUNORUBICIN HYDROCHLORIDE. [Suspect]
     Active Substance: DAUNORUBICIN HYDROCHLORIDE
     Indication: ACUTE LYMPHOCYTIC LEUKAEMIA
     Dosage: 84 MILLIGRAM
     Route: 065
     Dates: start: 20180411, end: 20180411
  46. METHOTREXATE. [Suspect]
     Active Substance: METHOTREXATE
     Indication: ACUTE LYMPHOCYTIC LEUKAEMIA
     Dosage: 17 MILLIGRAM
     Route: 065
     Dates: start: 20180619, end: 20180619
  47. DEXAMETHASONE. [Suspect]
     Active Substance: DEXAMETHASONE
     Indication: ACUTE LYMPHOCYTIC LEUKAEMIA
     Dosage: 3.3 MILLIGRAM
     Route: 065
     Dates: start: 20171018, end: 20171018
  48. DEXAMETHASONE. [Suspect]
     Active Substance: DEXAMETHASONE
     Indication: ACUTE LYMPHOCYTIC LEUKAEMIA
     Dosage: 3.3 MILLIGRAM
     Route: 065
     Dates: start: 20180227, end: 20180227
  49. PREDNISOLONE. [Suspect]
     Active Substance: PREDNISOLONE
     Indication: ACUTE LYMPHOCYTIC LEUKAEMIA
     Dosage: 110 MILLIGRAM
     Route: 065
     Dates: start: 20180411, end: 20180417
  50. CYCLOPHOSPHAMIDE MONOHYDRATE [Suspect]
     Active Substance: CYCLOPHOSPHAMIDE
     Indication: ACUTE LYMPHOCYTIC LEUKAEMIA
     Dosage: 1200 MILLIGRAM
     Route: 065
     Dates: start: 20171018, end: 20171018
  51. ITRACONAZOLE. [Suspect]
     Active Substance: ITRACONAZOLE
     Indication: PROPHYLAXIS
     Dosage: 20 MILLIGRAM
     Route: 065
     Dates: start: 20170831, end: 20180820
  52. DENOSINE [GANCICLOVIR] [Suspect]
     Active Substance: GANCICLOVIR
     Indication: C-REACTIVE PROTEIN INCREASED
     Route: 065
     Dates: start: 20180725, end: 20180814
  53. CYTARABINE. [Suspect]
     Active Substance: CYTARABINE
     Indication: ACUTE LYMPHOCYTIC LEUKAEMIA
     Dosage: 4000 MILLIGRAM, BID
     Route: 065
     Dates: start: 20171208, end: 20171209
  54. VINCRISTINE SULFATE. [Suspect]
     Active Substance: VINCRISTINE SULFATE
     Indication: ACUTE LYMPHOCYTIC LEUKAEMIA
     Dosage: 2 MILLIGRAM
     Route: 065
     Dates: start: 20171101, end: 20171101
  55. VINCRISTINE SULFATE. [Suspect]
     Active Substance: VINCRISTINE SULFATE
     Indication: ACUTE LYMPHOCYTIC LEUKAEMIA
     Dosage: 2 MILLIGRAM
     Route: 065
     Dates: start: 20180112, end: 20180112
  56. VINCRISTINE SULFATE. [Suspect]
     Active Substance: VINCRISTINE SULFATE
     Indication: ACUTE LYMPHOCYTIC LEUKAEMIA
     Dosage: 2 MILLIGRAM
     Route: 065
     Dates: start: 20180411, end: 20180411
  57. PREDNISOLONE. [Suspect]
     Active Substance: PREDNISOLONE
     Indication: ACUTE LYMPHOCYTIC LEUKAEMIA
     Dosage: 100 MILLIGRAM
     Route: 065
     Dates: start: 20170906, end: 20170921
  58. PREDNISOLONE. [Suspect]
     Active Substance: PREDNISOLONE
     Indication: ACUTE LYMPHOCYTIC LEUKAEMIA
     Dosage: 30 MILLIGRAM
     Route: 065
     Dates: start: 20171110, end: 20171111
  59. PREDNISOLONE. [Suspect]
     Active Substance: PREDNISOLONE
     Indication: ACUTE LYMPHOCYTIC LEUKAEMIA
     Dosage: 115 MILLIGRAM
     Route: 065
     Dates: start: 20180112, end: 20180118
  60. PREDNISOLONE. [Suspect]
     Active Substance: PREDNISOLONE
     Indication: ACUTE LYMPHOCYTIC LEUKAEMIA
     Dosage: 25 MILLIGRAM
     Route: 065
     Dates: start: 20180420, end: 20180421
  61. ICLUSIG [Suspect]
     Active Substance: PONATINIB
     Indication: ACUTE LYMPHOCYTIC LEUKAEMIA
     Dosage: 30 MILLIGRAM, QD
     Route: 048
     Dates: start: 20180713, end: 20180714
  62. METHYLPREDNISOLONE. [Suspect]
     Active Substance: METHYLPREDNISOLONE
     Indication: ACUTE LYMPHOCYTIC LEUKAEMIA
     Dosage: 50 MILLIGRAM, BID
     Route: 065
     Dates: start: 20180227, end: 20180301
  63. PREDNISOLONE. [Suspect]
     Active Substance: PREDNISOLONE
     Indication: ACUTE LYMPHOCYTIC LEUKAEMIA
     Dosage: 60 MILLIGRAM
     Route: 065
     Dates: start: 20170922, end: 20170923

REACTIONS (20)
  - Neutrophil count decreased [Fatal]
  - Anaemia [Fatal]
  - Blood uric acid increased [Fatal]
  - Rash [Recovering/Resolving]
  - Blood bilirubin increased [Fatal]
  - Blood alkaline phosphatase increased [Fatal]
  - Disseminated intravascular coagulation [Fatal]
  - Platelet count decreased [Fatal]
  - C-reactive protein increased [Fatal]
  - Hypertension [Fatal]
  - Acute lymphocytic leukaemia [Fatal]
  - White blood cell count decreased [Fatal]
  - Tachycardia [Fatal]
  - Blood potassium increased [Fatal]
  - Alanine aminotransferase increased [Fatal]
  - Blood lactate dehydrogenase increased [Fatal]
  - Blood urea increased [Fatal]
  - Therapeutic product effect incomplete [Unknown]
  - Blood creatinine increased [Fatal]
  - Aspartate aminotransferase increased [Fatal]

NARRATIVE: CASE EVENT DATE: 20180417
